FAERS Safety Report 24841882 (Version 6)
Quarter: 2025Q3

REPORT INFORMATION
  Report Type: Spontaneous
  Country: PE (occurrence: PE)
  Receive Date: 20250114
  Receipt Date: 20250921
  Transmission Date: 20251020
  Serious: Yes (Life-Threatening, Hospitalization, Other)
  Sender: AMGEN
  Company Number: PE-PFIZER INC-PV202500003764

PATIENT
  Age: 77 Year
  Sex: Male

DRUGS (4)
  1. ENBREL [Suspect]
     Active Substance: ETANERCEPT
     Indication: Ankylosing spondylitis
     Dosage: 50 MG, WEEKLY
     Route: 058
     Dates: start: 202205
  2. CITICOLINE [Suspect]
     Active Substance: CITICOLINE
     Indication: Product used for unknown indication
     Dosage: 10 IN THE MORNING WITH LESS THAN HALF A GLASS OF WATER
     Route: 065
  3. PRAMIPEXOLE [Suspect]
     Active Substance: PRAMIPEXOLE
     Indication: Product used for unknown indication
     Dosage: UNK, 3X/DAY
     Route: 065
  4. PRAMIPEXOLE [Suspect]
     Active Substance: PRAMIPEXOLE
     Dosage: UNK, 2X/DAY
     Route: 065

REACTIONS (15)
  - Pneumonia aspiration [Recovered/Resolved]
  - Hypotension [Unknown]
  - Pancreatic failure [Unknown]
  - Parkinson^s disease [Unknown]
  - Nervous system disorder [Unknown]
  - Progressive supranuclear palsy [Unknown]
  - Fall [Unknown]
  - Brain injury [Unknown]
  - Cerebral infarction [Unknown]
  - Bradykinesia [Unknown]
  - Loss of personal independence in daily activities [Unknown]
  - Musculoskeletal stiffness [Unknown]
  - Pain [Unknown]
  - Parkinsonism [Unknown]
  - Dysphagia [Unknown]

NARRATIVE: CASE EVENT DATE: 20240101
